FAERS Safety Report 8379462-3 (Version None)
Quarter: 2012Q2

REPORT INFORMATION
  Report Type: 
  Country: None (occurrence: None)
  Receive Date: 20120523
  Receipt Date: 20120514
  Transmission Date: 20120825
  Serious: Yes (Other)
  Sender: FDA-Public Use
  Company Number: AU-BRISTOL-MYERS SQUIBB COMPANY-16595738

PATIENT
  Sex: Female

DRUGS (1)
  1. SPRYCEL [Suspect]
     Indication: CHRONIC MYELOID LEUKAEMIA
     Dates: start: 20120101

REACTIONS (4)
  - MIGRAINE [None]
  - DIVERTICULUM INTESTINAL [None]
  - MYALGIA [None]
  - LIVER FUNCTION TEST ABNORMAL [None]
